FAERS Safety Report 7357531-4 (Version None)
Quarter: 2011Q1

REPORT INFORMATION
  Report Type: 
  Country: None (occurrence: None)
  Receive Date: 20110314
  Receipt Date: 20110314
  Transmission Date: 20110831
  Serious: Yes (Life-Threatening)
  Sender: FDA-Public Use
  Company Number: None

PATIENT
  Age: 44 Year
  Sex: Female
  Weight: 108.8633 kg

DRUGS (2)
  1. LUNESTA [Suspect]
     Indication: INSOMNIA
     Dosage: 3MG BEDTIME PO
     Route: 048
     Dates: start: 20110219, end: 20110219
  2. LUNESTA [Suspect]
     Indication: INSOMNIA
     Dosage: 3MG BEDTIME PO
     Route: 048
     Dates: start: 20110218, end: 20110219

REACTIONS (4)
  - SWOLLEN TONGUE [None]
  - RETCHING [None]
  - DYSGEUSIA [None]
  - INSOMNIA [None]
